FAERS Safety Report 12257266 (Version 21)
Quarter: 2019Q2

REPORT INFORMATION
  Report Type: Spontaneous
  Country: US (occurrence: US)
  Receive Date: 20160412
  Receipt Date: 20190614
  Transmission Date: 20190711
  Serious: Yes (Hospitalization, Disabling)
  Sender: FDA-Public Use
  Company Number: US-ACTELION PHARMACEUTICALS US, INC.-A-US2016-132869

PATIENT
  Age: 45 Year
  Sex: Female

DRUGS (53)
  1. ORENITRAM [Suspect]
     Active Substance: TREPROSTINIL
     Dosage: 0.875 MG, TID
     Route: 048
     Dates: start: 20160329
  2. HEPARIN [Concomitant]
     Active Substance: HEPARIN SODIUM
     Dosage: UNK
  3. TYLENOL [Concomitant]
     Active Substance: ACETAMINOPHEN
  4. VANCOMYCIN [Concomitant]
     Active Substance: VANCOMYCIN
  5. PREGABALIN. [Concomitant]
     Active Substance: PREGABALIN
  6. MECLIZINE [Concomitant]
     Active Substance: MECLIZINE HYDROCHLORIDE
  7. REMERON [Concomitant]
     Active Substance: MIRTAZAPINE
  8. ASPIRIN. [Concomitant]
     Active Substance: ASPIRIN
     Dosage: 81 MG, UNK
  9. TRIAMCINOLONE [Concomitant]
     Active Substance: TRIAMCINOLONE
     Route: 061
  10. DULERA [Concomitant]
     Active Substance: FORMOTEROL FUMARATE DIHYDRATE\MOMETASONE FUROATE
  11. PROCHLORPERAZINE. [Concomitant]
     Active Substance: PROCHLORPERAZINE
  12. OPSUMIT [Suspect]
     Active Substance: MACITENTAN
     Indication: PULMONARY ARTERIAL HYPERTENSION
     Dosage: 10 MG, QD
     Route: 048
     Dates: start: 20160223
  13. ECOTRIN [Concomitant]
     Active Substance: ASPIRIN
  14. MELATONIN [Concomitant]
     Active Substance: MELATONIN
  15. NABUMETONE. [Concomitant]
     Active Substance: NABUMETONE
  16. RANITIDINE. [Concomitant]
     Active Substance: RANITIDINE
     Dosage: 150 MG, UNK
  17. NORCO [Concomitant]
     Active Substance: ACETAMINOPHEN\HYDROCODONE BITARTRATE
  18. FORMOTEROL [Concomitant]
     Active Substance: FORMOTEROL
  19. ESCITALOPRAM [Concomitant]
     Active Substance: ESCITALOPRAM OXALATE
  20. ORENITRAM [Suspect]
     Active Substance: TREPROSTINIL
     Dosage: UNK
     Route: 048
     Dates: end: 20160326
  21. PREDNISONE. [Concomitant]
     Active Substance: PREDNISONE
     Dosage: 10 MG, UNK
  22. METHOTREXATE. [Concomitant]
     Active Substance: METHOTREXATE
  23. ORENITRAM [Suspect]
     Active Substance: TREPROSTINIL
     Dosage: 4.625 UNK, UNK
     Route: 065
  24. PANTOPRAZOLE [Concomitant]
     Active Substance: PANTOPRAZOLE
     Dosage: UNK
  25. GABAPENTIN. [Concomitant]
     Active Substance: GABAPENTIN
     Dosage: 300 MG, UNK
  26. ASPIRIN. [Concomitant]
     Active Substance: ASPIRIN
     Dosage: UNK
  27. MIRTAZAPINE. [Concomitant]
     Active Substance: MIRTAZAPINE
     Dosage: 7.5 MG, UNK
  28. CLINDAMYCIN. [Concomitant]
     Active Substance: CLINDAMYCIN
  29. LORAZEPAM. [Concomitant]
     Active Substance: LORAZEPAM
  30. FAMOTIDINE. [Concomitant]
     Active Substance: FAMOTIDINE
  31. ZOLPIDEM [Concomitant]
     Active Substance: ZOLPIDEM\ZOLPIDEM TARTRATE
  32. PLAQUENIL [Concomitant]
     Active Substance: HYDROXYCHLOROQUINE SULFATE
  33. MULTIVITAMIN [Concomitant]
     Active Substance: VITAMINS
  34. VENTOLIN HFA [Concomitant]
     Active Substance: ALBUTEROL SULFATE
  35. IMODIUM A-D [Concomitant]
     Active Substance: LOPERAMIDE HYDROCHLORIDE
  36. METOCLOPRAMIDE. [Concomitant]
     Active Substance: METOCLOPRAMIDE
  37. ORENITRAM [Suspect]
     Active Substance: TREPROSTINIL
     Dosage: 4 MG, UNK
     Route: 065
  38. VALIUM [Concomitant]
     Active Substance: DIAZEPAM
  39. LIDOCAINE. [Concomitant]
     Active Substance: LIDOCAINE
  40. PNEUMOCOCCAL VACCINE POLYVALENT NOS [Concomitant]
     Active Substance: PNEUMOCOCCAL VACCINE POLYVALENT
  41. ONDANSETRON [Concomitant]
     Active Substance: ONDANSETRON
  42. IMODIUM [Concomitant]
     Active Substance: LOPERAMIDE HYDROCHLORIDE
     Dosage: 2 MG, UNK
  43. HYDROCODONE BITARTRATE AND ACETAMINOPHEN [Concomitant]
     Active Substance: ACETAMINOPHEN\HYDROCODONE BITARTRATE
     Dosage: 10-325 MG
  44. PROPANTHELINE [Concomitant]
     Active Substance: PROPANTHELINE
  45. ORENITRAM [Suspect]
     Active Substance: TREPROSTINIL
     Indication: PRODUCT USED FOR UNKNOWN INDICATION
     Dosage: 1 MG, TID
     Route: 048
     Dates: start: 20160326, end: 20160328
  46. FUROSEMIDE. [Concomitant]
     Active Substance: FUROSEMIDE
     Dosage: UNK
  47. SERTRALINE [Concomitant]
     Active Substance: SERTRALINE HYDROCHLORIDE
  48. HYDROCODONE [Concomitant]
     Active Substance: HYDROCODONE
  49. ORENITRAM [Suspect]
     Active Substance: TREPROSTINIL
     Dosage: 4.5 UNK, UNK
     Route: 065
  50. REMODULIN [Suspect]
     Active Substance: TREPROSTINIL
     Indication: PRODUCT USED FOR UNKNOWN INDICATION
     Dosage: 1 MG/ML, UNK
     Route: 065
  51. HYDROXYCHLOROQUINE [Concomitant]
     Active Substance: HYDROXYCHLOROQUINE
     Dosage: UNK
  52. MORPHINE [Concomitant]
     Active Substance: MORPHINE
  53. PROCHLORPERAZ [Concomitant]
     Active Substance: PROCHLORPERAZINE MALEATE

REACTIONS (45)
  - Nausea [Not Recovered/Not Resolved]
  - Abdominal pain [Recovered/Resolved]
  - Device infusion issue [Recovered/Resolved]
  - Hyperhidrosis [Recovered/Resolved]
  - Palpitations [Not Recovered/Not Resolved]
  - Systemic lupus erythematosus [Unknown]
  - Presyncope [Unknown]
  - Product dose omission [Unknown]
  - Rhinitis [Unknown]
  - Road traffic accident [Unknown]
  - Contusion [Unknown]
  - Memory impairment [Unknown]
  - Vomiting [Not Recovered/Not Resolved]
  - Cellulitis [Recovered/Resolved]
  - Abdominal wall disorder [Recovered/Resolved]
  - Chest discomfort [Recovered/Resolved]
  - Pulmonary hypertension [Unknown]
  - Heart rate increased [Recovered/Resolved]
  - Pleural effusion [Unknown]
  - Erythema [Recovered/Resolved]
  - Hospitalisation [Unknown]
  - Depression [Unknown]
  - Decreased appetite [Not Recovered/Not Resolved]
  - Blood albumin decreased [Not Recovered/Not Resolved]
  - Dizziness [Not Recovered/Not Resolved]
  - Crying [Unknown]
  - Ligament sprain [Unknown]
  - Diarrhoea [Recovered/Resolved]
  - Insomnia [Not Recovered/Not Resolved]
  - Hypovolaemia [Unknown]
  - Right ventricular failure [Unknown]
  - Quality of life decreased [Recovered/Resolved]
  - Rash [Recovered/Resolved]
  - Chest pain [Recovered/Resolved]
  - Injection site pain [Recovered/Resolved with Sequelae]
  - Dyspnoea exertional [Not Recovered/Not Resolved]
  - Injection site erythema [Recovered/Resolved]
  - Injection site warmth [Recovered/Resolved]
  - Headache [Recovering/Resolving]
  - Anaemia [Unknown]
  - Catheter site related reaction [Unknown]
  - Weight decreased [Not Recovered/Not Resolved]
  - Dyspnoea [Not Recovered/Not Resolved]
  - Abdominal pain upper [Not Recovered/Not Resolved]
  - Gastrointestinal disorder [Not Recovered/Not Resolved]

NARRATIVE: CASE EVENT DATE: 20160309
